FAERS Safety Report 5689840-9 (Version None)
Quarter: 2008Q1

REPORT INFORMATION
  Report Type: 
  Country: None (occurrence: None)
  Receive Date: 20080331
  Receipt Date: 20080331
  Transmission Date: 20080703
  Serious: Yes (Other)
  Sender: FDA-Public Use
  Company Number: None

PATIENT
  Age: 10 Year
  Sex: Male
  Weight: 31.7518 kg

DRUGS (1)
  1. SINGULAIR [Suspect]
     Indication: ASTHMA
     Dosage: 5 MG NIGHTLY
     Dates: start: 20060901, end: 20080327

REACTIONS (8)
  - ABNORMAL BEHAVIOUR [None]
  - AFFECTIVE DISORDER [None]
  - CRYING [None]
  - FEELING ABNORMAL [None]
  - FEELING OF DESPAIR [None]
  - INSOMNIA [None]
  - SOMNOLENCE [None]
  - SUICIDAL IDEATION [None]
